FAERS Safety Report 17136611 (Version 1)
Quarter: 2019Q4

REPORT INFORMATION
  Report Type: Report from Study
  Country: PK (occurrence: PK)
  Receive Date: 20191210
  Receipt Date: 20191210
  Transmission Date: 20200122
  Serious: Yes (Death, Other)
  Sender: FDA-Public Use
  Company Number: NVSC2019PK064559

PATIENT
  Sex: Female
  Weight: 66 kg

DRUGS (1)
  1. AFINITOR [Suspect]
     Active Substance: EVEROLIMUS
     Indication: BREAST CANCER
     Dosage: 10 MG, QD
     Route: 048
     Dates: start: 20181129

REACTIONS (4)
  - Metastases to liver [Unknown]
  - Hepatic failure [Unknown]
  - Breast cancer [Fatal]
  - Malignant neoplasm progression [Fatal]
